FAERS Safety Report 6937731-5 (Version None)
Quarter: 2010Q3

REPORT INFORMATION
  Report Type: 
  Country: None (occurrence: None)
  Receive Date: 20100820
  Receipt Date: 20100820
  Transmission Date: 20110219
  Serious: Yes (Death)
  Sender: FDA-Public Use
  Company Number: None

PATIENT
  Age: 76 Year
  Sex: Male
  Weight: 72.7 kg

DRUGS (1)
  1. TARCEVA [Suspect]
     Indication: NON-SMALL CELL LUNG CANCER METASTATIC
     Dates: start: 20090701, end: 20100530

REACTIONS (9)
  - ABDOMINAL DISTENSION [None]
  - CARDIAC ARREST [None]
  - GASTROINTESTINAL DISORDER [None]
  - PAIN [None]
  - RESPIRATORY DISTRESS [None]
  - SEPSIS [None]
  - TACHYPNOEA [None]
  - VENTRICULAR FIBRILLATION [None]
  - VOMITING [None]
